FAERS Safety Report 4930896-6 (Version None)
Quarter: 2006Q1

REPORT INFORMATION
  Report Type: 
  Country: None (occurrence: None)
  Receive Date: 20060227
  Receipt Date: 20060213
  Transmission Date: 20060701
  Serious: Yes (Other)
  Sender: FDA-Public Use
  Company Number: 2004-DE-00335DE

PATIENT
  Age: 72 Year
  Sex: Female
  Weight: 82.9 kg

DRUGS (3)
  1. MICARDIS [Suspect]
     Indication: DIABETIC NEPHROPATHY
     Dosage: 80 MG (80 MG), PO
     Route: 048
     Dates: start: 20030721, end: 20040121
  2. MICARDIS [Suspect]
     Indication: HYPERTENSION
     Dosage: 80 MG (80 MG), PO
     Route: 048
     Dates: start: 20030721, end: 20040121
  3. FUROSEMIDE [Suspect]
     Indication: OEDEMA
     Dosage: 205 MG (500 MG), PO
     Route: 048
     Dates: start: 20031217, end: 20040122

REACTIONS (2)
  - OEDEMA [None]
  - RENAL FAILURE [None]
